FAERS Safety Report 23953852 (Version 1)
Quarter: 2024Q2

REPORT INFORMATION
  Report Type: Spontaneous
  Country: CN (occurrence: CN)
  Receive Date: 20240609
  Receipt Date: 20240609
  Transmission Date: 20240716
  Serious: Yes (Hospitalization)
  Sender: FDA-Public Use
  Company Number: CN-AMGEN-CHNSP2024110919

PATIENT
  Age: 72 Year
  Sex: Female
  Weight: 45 kg

DRUGS (3)
  1. BLINCYTO [Suspect]
     Active Substance: BLINATUMOMAB
     Indication: Acute lymphocytic leukaemia
     Dosage: 9 MICROGRAM (0.83 ML)
     Route: 065
     Dates: start: 20240524, end: 20240530
  2. BLINCYTO [Suspect]
     Active Substance: BLINATUMOMAB
     Dosage: 28 MICROGRAM (2.6 ML), CONTINUING (24 H) AT SPEED 10ML/L
     Route: 065
     Dates: start: 20240531, end: 20240603
  3. WATER FOR INJECTION [Concomitant]
     Active Substance: WATER
     Dosage: 5 MILLILITER
     Route: 058
     Dates: start: 20240524, end: 20240603

REACTIONS (1)
  - Myelosuppression [Recovering/Resolving]

NARRATIVE: CASE EVENT DATE: 20240526
